FAERS Safety Report 15296256 (Version 1)
Quarter: 2018Q3

REPORT INFORMATION
  Report Type: Spontaneous
  Country: US (occurrence: US)
  Receive Date: 20180820
  Receipt Date: 20180820
  Transmission Date: 20181010
  Serious: Yes (Other)
  Sender: FDA-Public Use
  Company Number: US-ACCORD-070893

PATIENT
  Sex: Male

DRUGS (1)
  1. CISPLATIN. [Suspect]
     Active Substance: CISPLATIN
     Indication: HEAD AND NECK CANCER
     Dates: end: 201504

REACTIONS (8)
  - Haemoptysis [Unknown]
  - Pleural effusion [Unknown]
  - Lung abscess [Recovering/Resolving]
  - Hypercholesterolaemia [Unknown]
  - Metastasis [Unknown]
  - Lung infection [Recovering/Resolving]
  - Off label use [Unknown]
  - Hypertension [Unknown]

NARRATIVE: CASE EVENT DATE: 20180612
